FAERS Safety Report 6510090-8 (Version None)
Quarter: 2009Q4

REPORT INFORMATION
  Report Type: 
  Country: None (occurrence: None)
  Receive Date: 20091222
  Receipt Date: 20091215
  Transmission Date: 20100525
  Serious: Yes (Other)
  Sender: FDA-Public Use
  Company Number: DE-BAUSCH-2009BL004553

PATIENT
  Age: 68 Year
  Sex: Female
  Weight: 60 kg

DRUGS (1)
  1. BETAMANN 0.3% EDO AUGENTROPFEN [Suspect]
     Indication: GLAUCOMA
     Route: 047
     Dates: start: 20070701

REACTIONS (3)
  - RETINAL HAEMORRHAGE [None]
  - RETINAL SCAR [None]
  - VISION BLURRED [None]
